FAERS Safety Report 5648161-0 (Version None)
Quarter: 2008Q1

REPORT INFORMATION
  Report Type: 
  Country: None (occurrence: None)
  Receive Date: 20080229
  Receipt Date: 20080220
  Transmission Date: 20080703
  Serious: Yes (Other)
  Sender: FDA-Public Use
  Company Number: 2008-01478

PATIENT
  Age: 39 Year
  Sex: Female

DRUGS (4)
  1. METHYLPREDNISOLONE ACETATE [Suspect]
     Indication: DRUG HYPERSENSITIVITY
     Dosage: 80 MG, SINGLE, INTRAVENOUS
     Route: 042
     Dates: start: 20070101, end: 20070101
  2. PREDNISONE TAB [Suspect]
     Indication: DENTAL OPERATION
     Dosage: 50 MG X 2 DOSES, ORAL
     Route: 048
     Dates: start: 20070101, end: 20070101
  3. CHLORPHENAMINE (CHLORPHENAMINE) [Concomitant]
  4. MEPIVACAINE HCL [Concomitant]

REACTIONS (1)
  - ANGIOEDEMA [None]
